FAERS Safety Report 14282487 (Version 1)
Quarter: 2017Q4

REPORT INFORMATION
  Report Type: Spontaneous
  Country: US (occurrence: US)
  Receive Date: 20171213
  Receipt Date: 20171213
  Transmission Date: 20180321
  Serious: No
  Sender: FDA-Public Use
  Company Number: US-MALLINCKRODT-T201700848

PATIENT
  Age: 94 Year
  Sex: Female
  Weight: 68 kg

DRUGS (3)
  1. FENTANYL TRANSDERMAL SYSTEM [Suspect]
     Active Substance: FENTANYL
     Indication: PAIN
     Dosage: 12 MCG/HR, Q3D
     Route: 062
     Dates: start: 201702
  2. FENTANYL TRANSDERMAL SYSTEM [Suspect]
     Active Substance: FENTANYL
     Indication: FIBROMYALGIA
  3. OXYCONTIN [Concomitant]
     Active Substance: OXYCODONE HYDROCHLORIDE

REACTIONS (5)
  - Dizziness [Unknown]
  - Product adhesion issue [Recovered/Resolved]
  - Therapy cessation [Recovered/Resolved]
  - Drug effect incomplete [Unknown]
  - Somnolence [Unknown]

NARRATIVE: CASE EVENT DATE: 201702
